FAERS Safety Report 20844479 (Version 2)
Quarter: 2023Q2

REPORT INFORMATION
  Report Type: Spontaneous
  Country: US (occurrence: US)
  Receive Date: 20220518
  Receipt Date: 20230517
  Transmission Date: 20230722
  Serious: No
  Sender: FDA-Public Use
  Company Number: US-NOVOPROD-902880

PATIENT
  Age: 14 Year
  Sex: Male

DRUGS (1)
  1. NORDITROPIN [Suspect]
     Active Substance: SOMATROPIN
     Indication: Product used for unknown indication
     Dosage: UNK
     Route: 058
     Dates: end: 2022

REACTIONS (4)
  - Sleep disorder [Unknown]
  - Irritability [Unknown]
  - Fatigue [Unknown]
  - Headache [Unknown]
